FAERS Safety Report 17741111 (Version 4)
Quarter: 2020Q3

REPORT INFORMATION
  Report Type: Report from Study
  Country: US (occurrence: US)
  Receive Date: 20200504
  Receipt Date: 20200817
  Transmission Date: 20201102
  Serious: Yes (Other)
  Sender: FDA-Public Use
  Company Number: NVSC2020US118854

PATIENT
  Sex: Female

DRUGS (1)
  1. PIQRAY [Suspect]
     Active Substance: ALPELISIB
     Indication: PRODUCT USED FOR UNKNOWN INDICATION
     Dosage: UNK
     Route: 048

REACTIONS (6)
  - Nausea [Recovering/Resolving]
  - Neoplasm malignant [Unknown]
  - Malignant neoplasm progression [Unknown]
  - Decreased appetite [Unknown]
  - Blood glucose increased [Unknown]
  - Diarrhoea [Recovering/Resolving]
